FAERS Safety Report 9373114 (Version 2)
Quarter: 2013Q3

REPORT INFORMATION
  Report Type: Spontaneous
  Country: US (occurrence: US)
  Receive Date: 20130627
  Receipt Date: 20130722
  Transmission Date: 20140515
  Serious: Yes (Death, Other)
  Sender: FDA-Public Use
  Company Number: US-GILEAD-2013-0077819

PATIENT
  Sex: Female

DRUGS (3)
  1. CAYSTON [Suspect]
     Indication: CYSTIC FIBROSIS
     Dosage: 75 MG, CYCLICAL
     Route: 055
     Dates: start: 201107, end: 201203
  2. CAYSTON [Suspect]
     Indication: BACTERIAL DISEASE CARRIER
  3. CAYSTON [Suspect]
     Indication: PULMONARY FUNCTION TEST DECREASED

REACTIONS (3)
  - Respiratory failure [Fatal]
  - Cystic fibrosis [Fatal]
  - Pneumonia [Fatal]
